FAERS Safety Report 8841309 (Version 2)
Quarter: 2013Q1

REPORT INFORMATION
  Report Type: Spontaneous
  Country: US (occurrence: US)
  Receive Date: 20121015
  Receipt Date: 20130227
  Transmission Date: 20140127
  Serious: Yes (Hospitalization, Other)
  Sender: FDA-Public Use
  Company Number: US-ASTRAZENECA-2012SE77243

PATIENT
  Age: 64 Year
  Sex: Male
  Weight: 119.7 kg

DRUGS (7)
  1. CRESTOR [Suspect]
     Route: 048
  2. MORPHIN [Concomitant]
  3. DILAUDID [Concomitant]
  4. PEPCID [Concomitant]
  5. GI COCKTAIL [Concomitant]
  6. KETOROLAC [Concomitant]
  7. NITROGLYCERINE [Concomitant]

REACTIONS (9)
  - Gallbladder disorder [Unknown]
  - Cholelithiasis [Unknown]
  - Lung infection [Unknown]
  - Coronary artery disease [Unknown]
  - Convulsion [Unknown]
  - Diverticulum [Unknown]
  - Chronic obstructive pulmonary disease [Unknown]
  - Hypertension [Unknown]
  - Dysuria [Unknown]
